FAERS Safety Report 21334641 (Version 4)
Quarter: 2022Q4

REPORT INFORMATION
  Report Type: Report from Study
  Country: US (occurrence: US)
  Receive Date: 20220914
  Receipt Date: 20221119
  Transmission Date: 20230113
  Serious: Yes (Other)
  Sender: FDA-Public Use
  Company Number: US-002147023-NVSC2022US207634

PATIENT
  Sex: Male

DRUGS (1)
  1. ENTRESTO [Suspect]
     Active Substance: SACUBITRIL\VALSARTAN
     Indication: Product used for unknown indication
     Dosage: 1 DOSAGE FORM, BID
     Route: 048
     Dates: start: 202208

REACTIONS (8)
  - Cardiac flutter [Unknown]
  - Arteriospasm coronary [Unknown]
  - Weight increased [Unknown]
  - Dehydration [Unknown]
  - Blood triglycerides increased [Unknown]
  - Dry mouth [Unknown]
  - Cough [Unknown]
  - Dizziness [Unknown]
